FAERS Safety Report 4705370-2 (Version None)
Quarter: 2005Q3

REPORT INFORMATION
  Report Type: 
  Country: None (occurrence: None)
  Receive Date: 20050701
  Receipt Date: 20050621
  Transmission Date: 20060218
  Serious: Yes (Hospitalization)
  Sender: FDA-Public Use
  Company Number: US-JNJFOC-20050606101

PATIENT
  Age: 28 Year
  Sex: Female
  Weight: 72.58 kg

DRUGS (3)
  1. ORTHO TRI-CYCLEN LO [Suspect]
     Indication: CONTRACEPTION
     Route: 049
  2. PAXIL [Concomitant]
  3. IBUPROPEN [Concomitant]

REACTIONS (1)
  - ANAPHYLACTOID REACTION [None]
